FAERS Safety Report 22594590 (Version 4)
Quarter: 2024Q1

REPORT INFORMATION
  Report Type: Spontaneous
  Country: GB (occurrence: GB)
  Receive Date: 20230613
  Receipt Date: 20240122
  Transmission Date: 20240410
  Serious: Yes (Other)
  Sender: FDA-Public Use
  Company Number: GB-MYLANLABS-2023M1061519

PATIENT
  Age: 36 Year
  Sex: Male

DRUGS (1)
  1. CLOZARIL [Suspect]
     Active Substance: CLOZAPINE
     Indication: Schizophrenia
     Dosage: UNK
     Route: 048
     Dates: start: 20120516

REACTIONS (3)
  - White blood cell count increased [Not Recovered/Not Resolved]
  - Chronic lymphocytic leukaemia [Unknown]
  - Illness [Unknown]

NARRATIVE: CASE EVENT DATE: 20230606
